FAERS Safety Report 6269353-6 (Version None)
Quarter: 2009Q3

REPORT INFORMATION
  Report Type: 
  Country: None (occurrence: None)
  Receive Date: 20090715
  Receipt Date: 20090702
  Transmission Date: 20100115
  Serious: Yes (Hospitalization, Other)
  Sender: FDA-Public Use
  Company Number: GB-MYLANLABS-2009S1012029

PATIENT
  Sex: Female

DRUGS (5)
  1. CIPROFLOXACIN [Suspect]
     Indication: ENDOCARDITIS BACTERIAL
  2. FLUCONAZOLE [Interacting]
     Indication: ENDOCARDITIS BACTERIAL
  3. RIFAMPICIN [Interacting]
     Indication: ENDOCARDITIS BACTERIAL
  4. DAPTOMYCIN [Interacting]
     Indication: ENDOCARDITIS BACTERIAL
  5. NEORAL [Interacting]
     Indication: APLASTIC ANAEMIA

REACTIONS (1)
  - DRUG INTERACTION [None]
